FAERS Safety Report 6242946-8 (Version None)
Quarter: 2009Q2

REPORT INFORMATION
  Report Type: 
  Country: None (occurrence: None)
  Receive Date: 20090617
  Receipt Date: 20071126
  Transmission Date: 20091009
  Serious: No
  Sender: FDA-Public Use
  Company Number: 269700

PATIENT
  Age: 78 Year
  Sex: Female

DRUGS (1)
  1. LEVEMIR [Suspect]
     Indication: TYPE 1 DIABETES MELLITUS
     Dosage: 5 LU, QD, SUBCUTANEOUS
     Route: 058
     Dates: start: 20071119

REACTIONS (1)
  - PAIN IN EXTREMITY [None]
